FAERS Safety Report 8774631 (Version 1)
Quarter: 2012Q4

REPORT INFORMATION
  Report Type: 
  Country: US (occurrence: US)
  Receive Date: 20120907
  Receipt Date: 20120907
  Transmission Date: 20130627
  Serious: Yes (Hospitalization, Other)
  Sender: FDA-Public Use
  Company Number: US-AMGEN-USASP2012055700

PATIENT

DRUGS (1)
  1. ENBREL [Suspect]
     Indication: RHEUMATOID ARTHRITIS
     Dosage: 50 UNK, UNK
     Route: 058
     Dates: start: 20000101

REACTIONS (12)
  - Arthralgia [Recovered/Resolved]
  - Joint swelling [Recovered/Resolved]
  - Joint effusion [Recovered/Resolved]
  - Fracture [Recovered/Resolved]
  - Cholecystectomy [Recovered/Resolved]
  - Surgery [Recovered/Resolved]
  - Meniscus injury [Recovered/Resolved]
  - Ligament rupture [Recovered/Resolved]
  - Carpal tunnel syndrome [Recovered/Resolved]
  - Cyst [Recovered/Resolved]
  - Gangrene [Recovered/Resolved]
  - Injection site pain [Not Recovered/Not Resolved]
